FAERS Safety Report 11461979 (Version 1)
Quarter: 2015Q3

REPORT INFORMATION
  Report Type: Spontaneous
  Country: US (occurrence: US)
  Receive Date: 20150831
  Receipt Date: 20150831
  Transmission Date: 20151125
  Serious: No
  Sender: FDA-Public Use
  Company Number: US-ELI_LILLY_AND_COMPANY-US200912001756

PATIENT
  Age: 43 Year
  Sex: Male
  Weight: 97.73 kg

DRUGS (10)
  1. ERGOCALCIFEROL (VITAMIN D) [Concomitant]
     Dosage: 50000 U, WEEKLY (1/W)
  2. ERGOCALCIFEROL (VITAMIN D) [Concomitant]
     Dosage: 2000 U, DAILY (1/D)
  3. CYMBALTA [Suspect]
     Active Substance: DULOXETINE HYDROCHLORIDE
     Indication: NEURALGIA
     Dosage: 60 MG, DAILY (1/D)
     Route: 048
     Dates: start: 20091009, end: 20091116
  4. CITALOPRAM [Concomitant]
     Active Substance: CITALOPRAM HYDROBROMIDE
     Dosage: 20 MG, UNK
  5. LORAZEPAM. [Concomitant]
     Active Substance: LORAZEPAM
     Indication: ANXIETY
     Dosage: 0.25 - 0.5 MG Q8H, AS NEEDED
  6. VICODIN [Concomitant]
     Active Substance: ACETAMINOPHEN\HYDROCODONE BITARTRATE
  7. CYMBALTA [Suspect]
     Active Substance: DULOXETINE HYDROCHLORIDE
     Dosage: 30 MG, DAILY (1/D)
     Route: 048
     Dates: start: 20091127, end: 20091201
  8. CYMBALTA [Suspect]
     Active Substance: DULOXETINE HYDROCHLORIDE
     Dosage: 30 MG, DAILY (1/D)
     Route: 048
     Dates: start: 20091117, end: 20091124
  9. LEVITRA [Concomitant]
     Active Substance: VARDENAFIL HYDROCHLORIDE TRIHYDRATE
     Dosage: 10-20 MG, AS NEEDED
  10. HYDROCODONE [Concomitant]
     Active Substance: HYDROCODONE

REACTIONS (29)
  - Disorientation [Not Recovered/Not Resolved]
  - Off label use [Recovered/Resolved]
  - Memory impairment [Not Recovered/Not Resolved]
  - Viral sinusitis [Unknown]
  - Nausea [Not Recovered/Not Resolved]
  - Speech disorder [Unknown]
  - Dysarthria [Unknown]
  - Ataxia [Unknown]
  - Anxiety [Not Recovered/Not Resolved]
  - Paraesthesia [Not Recovered/Not Resolved]
  - Sexual dysfunction [Unknown]
  - Disturbance in attention [Not Recovered/Not Resolved]
  - Drug hypersensitivity [Unknown]
  - Affect lability [Unknown]
  - Psychomotor skills impaired [Not Recovered/Not Resolved]
  - Mood altered [Not Recovered/Not Resolved]
  - Irritability [Not Recovered/Not Resolved]
  - Balance disorder [Recovering/Resolving]
  - Feeling drunk [Not Recovered/Not Resolved]
  - Somnolence [Unknown]
  - Feeling abnormal [Unknown]
  - Fibromyalgia [Not Recovered/Not Resolved]
  - Drug withdrawal syndrome [Not Recovered/Not Resolved]
  - Vertigo [Unknown]
  - Abasia [Not Recovered/Not Resolved]
  - Mental impairment [Not Recovered/Not Resolved]
  - Drug interaction [Unknown]
  - Blood creatine phosphokinase increased [Not Recovered/Not Resolved]
  - Dizziness [Not Recovered/Not Resolved]

NARRATIVE: CASE EVENT DATE: 2009
